FAERS Safety Report 6888575-4 (Version None)
Quarter: 2010Q3

REPORT INFORMATION
  Report Type: 
  Country: None (occurrence: None)
  Receive Date: 20100730
  Receipt Date: 20071010
  Transmission Date: 20110219
  Serious: No
  Sender: FDA-Public Use
  Company Number: US-PFIZER INC-2007086100

PATIENT
  Sex: Female

DRUGS (3)
  1. LIPITOR [Suspect]
     Indication: BLOOD CHOLESTEROL
     Dates: start: 19950101, end: 20060101
  2. ALLEGRA [Concomitant]
  3. ZIAC [Concomitant]

REACTIONS (1)
  - MUSCLE DISORDER [None]
